FAERS Safety Report 16678487 (Version 2)
Quarter: 2019Q3

REPORT INFORMATION
  Report Type: Report from Study
  Country: US (occurrence: US)
  Receive Date: 20190807
  Receipt Date: 20190909
  Transmission Date: 20191004
  Serious: Yes (Other)
  Sender: FDA-Public Use
  Company Number: US-JNJFOC-20190805371

PATIENT
  Sex: Female

DRUGS (1)
  1. IMBRUVICA [Suspect]
     Active Substance: IBRUTINIB
     Indication: CHRONIC LYMPHOCYTIC LEUKAEMIA
     Dosage: 140 MG, QD
     Route: 048
     Dates: start: 20171220

REACTIONS (7)
  - Hypoaesthesia [Unknown]
  - Nervousness [Unknown]
  - Gait disturbance [Unknown]
  - Back pain [Unknown]
  - Haemorrhage [Unknown]
  - Surgery [Unknown]
  - Blood sodium decreased [Unknown]
